FAERS Safety Report 5820645-1 (Version None)
Quarter: 2008Q3

REPORT INFORMATION
  Report Type: 
  Country: None (occurrence: None)
  Receive Date: 20080724
  Receipt Date: 20080128
  Transmission Date: 20090109
  Serious: No
  Sender: FDA-Public Use
  Company Number: A0700816A

PATIENT
  Age: 81 Year
  Sex: Male

DRUGS (9)
  1. AVANDIA [Suspect]
     Indication: DRUG USE FOR UNKNOWN INDICATION
     Dosage: 4MG UNKNOWN
     Route: 048
     Dates: start: 20070426, end: 20071021
  2. METFORMIN [Concomitant]
     Dosage: 1000U TWICE PER DAY
     Route: 048
  3. GEMFIBROZIL [Concomitant]
     Dosage: 600U TWICE PER DAY
     Route: 048
  4. UNKNOWN [Concomitant]
     Dosage: 15U PER DAY
     Route: 048
  5. METOPROLOL TARTRATE [Concomitant]
     Dosage: 50U PER DAY
     Route: 048
  6. TRENTAL [Concomitant]
     Dosage: 100U PER DAY
     Route: 048
  7. LASIX [Concomitant]
     Dosage: 40U PER DAY
     Route: 048
  8. UNKNOWN [Concomitant]
     Dosage: .5U PER DAY
     Route: 048
  9. POTASSIUM CHLORIDE [Concomitant]
     Dosage: 8MEQ PER DAY
     Route: 048

REACTIONS (4)
  - ADVERSE EVENT [None]
  - NEURALGIA [None]
  - OEDEMA PERIPHERAL [None]
  - SKIN DISORDER [None]
